FAERS Safety Report 4366981-X (Version None)
Quarter: 2004Q2

REPORT INFORMATION
  Report Type: 
  Country: None (occurrence: None)
  Receive Date: 20040527
  Receipt Date: 20040527
  Transmission Date: 20050107
  Serious: Yes (Other)
  Sender: FDA-Public Use
  Company Number: None

PATIENT
  Sex: Male
  Weight: 86.637 kg

DRUGS (10)
  1. DOCETAXEL 80 MG /2 ML AVENTIS [Suspect]
     Indication: PANCREATIC CARCINOMA
     Dosage: 48.75 MG/M2 Q 21 DAYS IV
     Route: 042
     Dates: start: 20040421, end: 20040512
  2. IRINOTECAN 100 MG/5 ML PHARMACIA AND UPJOHN [Suspect]
     Indication: PANCREATIC CARCINOMA
     Dosage: 120 MG/M2 Q 21 DAYS IV
     Route: 042
     Dates: start: 20040421, end: 20040512
  3. KLOR-CON [Concomitant]
  4. TRIAMETEREN HCTZ [Concomitant]
  5. MINOXIDIL [Concomitant]
  6. TERAZOSIN HCL [Concomitant]
  7. GLIPIZIDE [Concomitant]
  8. DIOVAN [Concomitant]
  9. PHENERGEN [Concomitant]
  10. ATIVAN [Concomitant]

REACTIONS (2)
  - FEBRILE NEUTROPENIA [None]
  - WHITE BLOOD CELL COUNT DECREASED [None]
